FAERS Safety Report 9111854 (Version 1)
Quarter: 2013Q1

REPORT INFORMATION
  Report Type: Spontaneous
  Country: US (occurrence: US)
  Receive Date: 20130219
  Receipt Date: 20130219
  Transmission Date: 20140127
  Serious: No
  Sender: FDA-Public Use
  Company Number: US-BRISTOL-MYERS SQUIBB COMPANY-16666935

PATIENT
  Age: 31 Year
  Sex: Female
  Weight: 82.99 kg

DRUGS (4)
  1. ORENCIA [Suspect]
     Indication: RHEUMATOID ARTHRITIS
     Dosage: LOT#:1L66311,2C77549 EXP DT: OCT2014?NO OF INF:2 AT 3 WEE?750MG 1MAY12,15MAY12,29MAY12
     Route: 042
     Dates: start: 20120501
  2. IBUPROFEN [Suspect]
  3. ULTRACET [Suspect]
  4. ARAVA [Suspect]

REACTIONS (1)
  - Menstruation irregular [Unknown]
